FAERS Safety Report 19273255 (Version 2)
Quarter: 2021Q2

REPORT INFORMATION
  Report Type: Spontaneous
  Country: US (occurrence: US)
  Receive Date: 20210518
  Receipt Date: 20210529
  Transmission Date: 20210717
  Serious: Yes (Other)
  Sender: FDA-Public Use
  Company Number: US-DRREDDYS-USA/USA/21/0135650

PATIENT
  Age: 64 Year
  Sex: Male
  Weight: 91 kg

DRUGS (21)
  1. NORTRIPTYLINE [Suspect]
     Active Substance: NORTRIPTYLINE
     Indication: OCCIPITAL NEURALGIA
     Route: 048
  2. TOPIRAMATE. [Suspect]
     Active Substance: TOPIRAMATE
     Indication: OCCIPITAL NEURALGIA
  3. IBUPROFEN. [Concomitant]
     Active Substance: IBUPROFEN
     Indication: OCCIPITAL NEURALGIA
     Dosage: AS NEEDED (PRN)
     Route: 048
  4. NORTRIPTYLINE [Concomitant]
     Active Substance: NORTRIPTYLINE
     Indication: OCCIPITAL NEURALGIA
     Route: 048
  5. TEMAZEPAM. [Concomitant]
     Active Substance: TEMAZEPAM
     Indication: OCCIPITAL NEURALGIA
     Route: 048
  6. TRIAMCINOLONE [Concomitant]
     Active Substance: TRIAMCINOLONE
     Indication: OCCIPITAL NEURALGIA
  7. METHOCARBAMOL. [Concomitant]
     Active Substance: METHOCARBAMOL
     Indication: OCCIPITAL NEURALGIA
     Route: 048
  8. TAMSULOSIN [Concomitant]
     Active Substance: TAMSULOSIN
     Indication: OCCIPITAL NEURALGIA
     Route: 048
  9. GABAPENTIN. [Suspect]
     Active Substance: GABAPENTIN
     Indication: OCCIPITAL NEURALGIA
  10. SUMATRIPTAN SUCCINATE TABLETS [Concomitant]
     Active Substance: SUMATRIPTAN SUCCINATE
     Indication: OCCIPITAL NEURALGIA
     Route: 048
  11. ZOLPIDEM [Concomitant]
     Active Substance: ZOLPIDEM TARTRATE
     Indication: OCCIPITAL NEURALGIA
     Route: 048
  12. CARISOPRODOL. [Concomitant]
     Active Substance: CARISOPRODOL
     Indication: OCCIPITAL NEURALGIA
     Route: 048
  13. OXYCODONE [Concomitant]
     Active Substance: OXYCODONE
     Indication: OCCIPITAL NEURALGIA
     Route: 048
  14. MEMANTINE HYDROCHLORIDE. [Suspect]
     Active Substance: MEMANTINE HYDROCHLORIDE
     Indication: OCCIPITAL NEURALGIA
     Dosage: AT BEDTIME
     Route: 048
  15. METOPROLOL SUCCINATE ER TABLETS 25 MG + 50 MG [Concomitant]
     Active Substance: METOPROLOL SUCCINATE
     Indication: OCCIPITAL NEURALGIA
     Route: 048
  16. PREGABALIN. [Suspect]
     Active Substance: PREGABALIN
     Indication: OCCIPITAL NEURALGIA
  17. MEMANTINE HYDROCHLORIDE. [Suspect]
     Active Substance: MEMANTINE HYDROCHLORIDE
     Dosage: HE WAS INSTRUCTED TO INCREASE HIS DAILY DOSE BY 5MG EACH WEEK, TARGETING MEMANTINE 10MG TWICE DAILY.
     Route: 048
  18. FENTANYL. [Suspect]
     Active Substance: FENTANYL
     Indication: OCCIPITAL NEURALGIA
     Route: 062
  19. ATORVASTATIN [Concomitant]
     Active Substance: ATORVASTATIN
     Indication: OCCIPITAL NEURALGIA
     Route: 048
  20. FENOFIBRATE. [Concomitant]
     Active Substance: FENOFIBRATE
     Indication: OCCIPITAL NEURALGIA
     Route: 048
  21. DULOXETINE DR [Concomitant]
     Active Substance: DULOXETINE
     Indication: OCCIPITAL NEURALGIA
     Route: 048

REACTIONS (2)
  - Product use in unapproved indication [Unknown]
  - Drug ineffective [Unknown]
